FAERS Safety Report 9807290 (Version 2)
Quarter: 2014Q1

REPORT INFORMATION
  Report Type: Spontaneous
  Country: US (occurrence: US)
  Receive Date: 20140110
  Receipt Date: 20140129
  Transmission Date: 20141002
  Serious: Yes (Death)
  Sender: FDA-Public Use
  Company Number: US-009507513-1401USA003815

PATIENT
  Age: 38 Year
  Sex: Male
  Weight: 89 kg

DRUGS (4)
  1. SAPHRIS [Suspect]
     Dosage: UNK
     Route: 060
  2. ALPRAZOLAM [Suspect]
  3. BUPROPION HYDROCHLORIDE [Suspect]
  4. QUETIAPINE FUMARATE [Suspect]

REACTIONS (2)
  - Toxicity to various agents [Fatal]
  - Completed suicide [Fatal]
